FAERS Safety Report 7768631-9 (Version None)
Quarter: 2011Q3

REPORT INFORMATION
  Report Type: 
  Country: None (occurrence: None)
  Receive Date: 20110922
  Receipt Date: 20101207
  Transmission Date: 20111222
  Serious: Yes (Other)
  Sender: FDA-Public Use
  Company Number: US-ASTRAZENECA-2010SE58488

PATIENT
  Age: 52 Year
  Sex: Female

DRUGS (1)
  1. SEROQUEL XR [Suspect]
     Route: 048
     Dates: start: 20001207

REACTIONS (13)
  - APHAGIA [None]
  - SUICIDE ATTEMPT [None]
  - TEMPOROMANDIBULAR JOINT SYNDROME [None]
  - REGURGITATION [None]
  - WEIGHT INCREASED [None]
  - SUICIDAL IDEATION [None]
  - EMOTIONAL DISORDER [None]
  - MANIA [None]
  - ABNORMAL BEHAVIOUR [None]
  - INTENTIONAL OVERDOSE [None]
  - TRISMUS [None]
  - DEPRESSION [None]
  - PANIC ATTACK [None]
